FAERS Safety Report 4692460-6 (Version None)
Quarter: 2005Q2

REPORT INFORMATION
  Report Type: 
  Country: None (occurrence: None)
  Receive Date: 20050613
  Receipt Date: 20050406
  Transmission Date: 20051028
  Serious: Yes (Disabling)
  Sender: FDA-Public Use
  Company Number: 2005-00736

PATIENT
  Age: 51 Year
  Sex: Male
  Weight: 111.1 kg

DRUGS (4)
  1. VELCADE [Suspect]
     Indication: MULTIPLE MYELOMA
     Dates: start: 20050301
  2. DEXAMETHASONE [Concomitant]
  3. ALLOPURINOL [Concomitant]
  4. NIZATIDINE [Concomitant]

REACTIONS (3)
  - BURNING SENSATION [None]
  - DIFFICULTY IN WALKING [None]
  - NEUROPATHY PERIPHERAL [None]
